FAERS Safety Report 12961918 (Version 2)
Quarter: 2016Q4

REPORT INFORMATION
  Report Type: Report from Study
  Country: None (occurrence: AR)
  Receive Date: 20161121
  Receipt Date: 20161226
  Transmission Date: 20170207
  Serious: Yes (Hospitalization)
  Sender: FDA-Public Use
  Company Number: AR-ABBVIE-16K-007-1786110-00

PATIENT
  Sex: Female

DRUGS (1)
  1. HUMIRA [Suspect]
     Active Substance: ADALIMUMAB
     Indication: PSORIATIC ARTHROPATHY
     Route: 058
     Dates: start: 20090312, end: 201610

REACTIONS (5)
  - Gastrointestinal disorder [Unknown]
  - Disease susceptibility [Unknown]
  - Weight decreased [Unknown]
  - Gastrointestinal ulcer [Unknown]
  - Abdominal hernia [Recovered/Resolved]
